FAERS Safety Report 16477938 (Version 1)
Quarter: 2019Q2

REPORT INFORMATION
  Report Type: Spontaneous
  Country: CA (occurrence: CA)
  Receive Date: 20190626
  Receipt Date: 20190626
  Transmission Date: 20190711
  Serious: Yes (Other)
  Sender: FDA-Public Use
  Company Number: CA-SAMSUNG BIOEPIS-SB-2019-15529

PATIENT
  Age: 36 Year
  Sex: Female
  Weight: 34 kg

DRUGS (4)
  1. INFLIXIMAB [Suspect]
     Active Substance: INFLIXIMAB
     Indication: CROHN^S DISEASE
     Route: 042
  2. IMURAN [Concomitant]
     Active Substance: AZATHIOPRINE
     Indication: PRODUCT USED FOR UNKNOWN INDICATION
     Route: 065
  3. IRON [Concomitant]
     Active Substance: IRON
     Indication: PRODUCT USED FOR UNKNOWN INDICATION
     Dosage: UNKNOWN
     Route: 048
  4. IMURAN [Concomitant]
     Active Substance: AZATHIOPRINE
     Route: 065

REACTIONS (9)
  - Overdose [Unknown]
  - Product use issue [Unknown]
  - Blood pressure fluctuation [Unknown]
  - Blood count abnormal [Unknown]
  - Respiratory rate increased [Unknown]
  - Abdominal pain [Unknown]
  - Heart rate increased [Unknown]
  - Weight increased [Unknown]
  - Incorrect dose administered [Unknown]
